FAERS Safety Report 21239980 (Version 1)
Quarter: 2022Q3

REPORT INFORMATION
  Report Type: Spontaneous
  Country: US (occurrence: None)
  Receive Date: 20220820
  Receipt Date: 20220820
  Transmission Date: 20221027
  Serious: Yes (Hospitalization)
  Sender: FDA-Public Use
  Company Number: None

PATIENT
  Age: 57 Year
  Sex: Male
  Weight: 40.5 kg

DRUGS (5)
  1. TRULICITY [Suspect]
     Active Substance: DULAGLUTIDE
     Indication: Diabetes mellitus
     Dosage: OTHER FREQUENCY : ONCE WEEKLY;?
     Route: 030
     Dates: start: 20220803, end: 20220817
  2. METOPROLOL [Concomitant]
     Active Substance: METOPROLOL
  3. LISINOPRIL [Concomitant]
  4. CRESTOR [Concomitant]
     Active Substance: ROSUVASTATIN CALCIUM
  5. ASPIRIN [Concomitant]

REACTIONS (4)
  - Pancreatitis [None]
  - Abdominal pain [None]
  - Pancreatic enzymes increased [None]
  - Illness [None]

NARRATIVE: CASE EVENT DATE: 20220818
